FAERS Safety Report 4368978-2 (Version None)
Quarter: 2004Q2

REPORT INFORMATION
  Report Type: 
  Country: None (occurrence: None)
  Receive Date: 20040603
  Receipt Date: 20040302
  Transmission Date: 20050107
  Serious: Yes (Death, Life-Threatening, Hospitalization)
  Sender: FDA-Public Use
  Company Number: PHHO2004CO03262

PATIENT
  Age: 46 Year
  Sex: Female
  Weight: 62 kg

DRUGS (4)
  1. FTY720 VS MYCOPHENOLATE MOFETIL [Suspect]
     Indication: RENAL TRANSPLANT
     Dosage: CODE NOT BROKEN
     Route: 048
     Dates: start: 20040210, end: 20040331
  2. ASPIRIN [Suspect]
     Dosage: 100 MG / DAY
     Route: 048
     Dates: start: 20040210, end: 20040302
  3. NEORAL [Suspect]
     Indication: RENAL TRANSPLANT
     Dosage: 175 MG, BID
     Route: 048
  4. PREDNISONE [Suspect]
     Indication: RENAL TRANSPLANT
     Dosage: 15 MG, QD
     Route: 048
     Dates: start: 20040213

REACTIONS (24)
  - ANAEMIA [None]
  - BLADDER CATHETERISATION [None]
  - BLOOD CREATININE INCREASED [None]
  - BLOOD PRESSURE DECREASED [None]
  - DYSURIA [None]
  - GENERAL PHYSICAL HEALTH DETERIORATION [None]
  - HAEMATURIA [None]
  - HAEMODIALYSIS [None]
  - HAEMORRHAGE URINARY TRACT [None]
  - IMMUNOSUPPRESSION [None]
  - METABOLIC ACIDOSIS [None]
  - MULTI-ORGAN FAILURE [None]
  - NEPHRECTOMY [None]
  - POST PROCEDURAL COMPLICATION [None]
  - PYREXIA [None]
  - RENAL ABSCESS [None]
  - RENAL TUBULAR NECROSIS [None]
  - SEPTIC SHOCK [None]
  - STENT PLACEMENT [None]
  - TRANSPLANT ABSCESS [None]
  - URINARY BLADDER HAEMORRHAGE [None]
  - URINARY TRACT INFECTION [None]
  - UROSEPSIS [None]
  - VOMITING [None]
